FAERS Safety Report 10197739 (Version 1)
Quarter: 2014Q2

REPORT INFORMATION
  Report Type: Spontaneous
  Country: US (occurrence: US)
  Receive Date: 20140527
  Receipt Date: 20140527
  Transmission Date: 20141212
  Serious: No
  Sender: FDA-Public Use
  Company Number: US-TEVA-483403USA

PATIENT
  Sex: Female

DRUGS (1)
  1. COPAXONE [Suspect]
     Indication: MULTIPLE SCLEROSIS
     Dates: start: 20130101, end: 20130901

REACTIONS (4)
  - Injection site reaction [Unknown]
  - Injection site pruritus [Unknown]
  - Injection site discomfort [Unknown]
  - Fatigue [Unknown]
